FAERS Safety Report 10475476 (Version 1)
Quarter: 2014Q3

REPORT INFORMATION
  Report Type: Spontaneous
  Country: US (occurrence: None)
  Receive Date: 20140924
  Receipt Date: 20140924
  Transmission Date: 20150326
  Serious: Yes (Hospitalization)
  Sender: FDA-Public Use
  Company Number: None

PATIENT
  Age: 68 Year
  Sex: Male
  Weight: 108.6 kg

DRUGS (12)
  1. MAG [Concomitant]
  2. FOLTANX [Concomitant]
  3. METOPROLOL [Concomitant]
     Active Substance: METOPROLOL
  4. CELEBREX [Concomitant]
     Active Substance: CELECOXIB
  5. LOSARTAN [Concomitant]
     Active Substance: LOSARTAN
  6. TAMSULOSIN [Concomitant]
     Active Substance: TAMSULOSIN
  7. TRAMADOL [Concomitant]
     Active Substance: TRAMADOL
  8. SEPTRA [Suspect]
     Active Substance: SULFAMETHOXAZOLE\TRIMETHOPRIM
     Indication: INFECTION
     Route: 048
  9. ASA [Concomitant]
     Active Substance: ASPIRIN
  10. VITAMIN D [Concomitant]
     Active Substance: CHOLECALCIFEROL
  11. CENTRUM SILVER [Concomitant]
     Active Substance: VITAMINS
  12. PROTONIX [Concomitant]
     Active Substance: PANTOPRAZOLE SODIUM

REACTIONS (1)
  - Pyrexia [None]

NARRATIVE: CASE EVENT DATE: 20140403
